FAERS Safety Report 9939799 (Version 1)
Quarter: 2014Q1

REPORT INFORMATION
  Report Type: Report from Study
  Country: US (occurrence: US)
  Receive Date: 20140303
  Receipt Date: 20140303
  Transmission Date: 20141002
  Serious: No
  Sender: FDA-Public Use
  Company Number: US-ABBVIE-13P-163-1035206-00

PATIENT
  Age: 57 Year
  Sex: Female
  Weight: 99.88 kg

DRUGS (16)
  1. HUMIRA [Suspect]
     Indication: RHEUMATOID ARTHRITIS
     Dates: start: 201208
  2. ACTIVELLA [Concomitant]
     Indication: MENOPAUSE
  3. METHOTREXATE [Concomitant]
     Indication: RHEUMATOID ARTHRITIS
  4. CYMBALTA [Concomitant]
     Indication: DEPRESSION
  5. CELEBREX [Concomitant]
     Indication: RHEUMATOID ARTHRITIS
  6. LORTAB [Concomitant]
     Indication: PAIN
  7. FOLIC ACID [Concomitant]
     Indication: VITAMIN SUPPLEMENTATION
  8. CYCLOBENZAPRINE [Concomitant]
     Indication: MYALGIA
  9. XANAX [Concomitant]
     Indication: ANXIETY
  10. PROTONIX [Concomitant]
     Indication: GASTRIC DISORDER
  11. MULTIVITAMIN [Concomitant]
     Indication: NUTRITIONAL SUPPLEMENTATION
  12. MEGARED [Concomitant]
     Indication: NUTRITIONAL SUPPLEMENTATION
  13. VITAMIN D3 [Concomitant]
     Indication: NUTRITIONAL SUPPLEMENTATION
  14. VITAMIN B12 [Concomitant]
     Indication: NUTRITIONAL SUPPLEMENTATION
  15. LORATADINE [Concomitant]
     Indication: SINUS DISORDER
  16. TYLENOL PM [Concomitant]
     Indication: INSOMNIA

REACTIONS (3)
  - Cough [Not Recovered/Not Resolved]
  - Dysphonia [Recovered/Resolved]
  - Oropharyngeal pain [Recovered/Resolved]
